FAERS Safety Report 24139142 (Version 4)
Quarter: 2025Q1

REPORT INFORMATION
  Report Type: Spontaneous
  Country: US (occurrence: US)
  Receive Date: 20240726
  Receipt Date: 20250217
  Transmission Date: 20250409
  Serious: Yes (Other)
  Sender: CSL BEHRING
  Company Number: US-BEH-2024175860

PATIENT
  Age: 56 Year
  Sex: Female

DRUGS (65)
  1. HIZENTRA [Suspect]
     Active Substance: HUMAN IMMUNOGLOBULIN G
     Indication: Immunodeficiency common variable
     Dosage: 30 G, QOW
     Route: 058
     Dates: start: 20211210
  2. HIZENTRA [Suspect]
     Active Substance: HUMAN IMMUNOGLOBULIN G
     Indication: Immunodeficiency
     Dosage: 4 G/20ML, TRANSFER 150 ML INTO THREE 50 ML SYRINGES. INFUSE 150 ML (30 GM) SUBCUTANEOUSLY EVERY 2 WE
     Route: 058
     Dates: start: 20211210
  3. HIZENTRA [Suspect]
     Active Substance: HUMAN IMMUNOGLOBULIN G
     Dosage: 2GM/10ML, TRANSFER 150 ML INTO THREE 50 ML SYRINGES. INFUSE 150 ML (30 GM) SUBCUTANEOUSLY EVERY 2 WE
     Route: 058
     Dates: start: 20211210
  4. HIZENTRA [Suspect]
     Active Substance: HUMAN IMMUNOGLOBULIN G
     Dosage: 4 G/20ML, TRANSFER 150 ML INTO THREE 50 ML SYRINGES. INFUSE 150 ML (30 GM) SUBCUTANEOUSLY EVERY 2 WE
     Route: 058
     Dates: start: 20211210
  5. HIZENTRA [Suspect]
     Active Substance: HUMAN IMMUNOGLOBULIN G
     Dosage: 2GM/10ML, TRANSFER 150 ML INTO THREE 50 ML SYRINGES. INFUSE 150 ML (30 GM) SUBCUTANEOUSLY EVERY 2 WE
     Route: 058
     Dates: start: 20211210
  6. DULOXETINE [Suspect]
     Active Substance: DULOXETINE
     Route: 065
  7. NURTEC ODT [Suspect]
     Active Substance: RIMEGEPANT SULFATE
     Route: 065
  8. AMOXICILLIN\CLAVULANATE POTASSIUM [Concomitant]
     Active Substance: AMOXICILLIN\CLAVULANATE POTASSIUM
  9. AZELASTINE [Concomitant]
     Active Substance: AZELASTINE
  10. AZITHROMYCIN [Concomitant]
     Active Substance: AZITHROMYCIN
  11. BOTOX [Concomitant]
     Active Substance: ONABOTULINUMTOXINA
  12. CEFUROXIME [Concomitant]
     Active Substance: CEFUROXIME
  13. Ciprofloxacin 0,3% and dexamethasone 0,1% [Concomitant]
  14. CIPROFLOXACIN [Concomitant]
     Active Substance: CIPROFLOXACIN
  15. CLARITHROMYCIN [Concomitant]
     Active Substance: CLARITHROMYCIN
  16. CLOBETASOL [Concomitant]
     Active Substance: CLOBETASOL
  17. CLONAZEPAM [Concomitant]
     Active Substance: CLONAZEPAM
  18. CYCLOBENZAPRINE [Concomitant]
     Active Substance: CYCLOBENZAPRINE
  19. CYCLOBENZAPRINE [Concomitant]
     Active Substance: CYCLOBENZAPRINE
  20. DESONIDE [Concomitant]
     Active Substance: DESONIDE
  21. DEXAMETHASONE [Concomitant]
     Active Substance: DEXAMETHASONE
  22. DIAZEPAM [Concomitant]
     Active Substance: DIAZEPAM
  23. EPINEPHRINE [Concomitant]
     Active Substance: EPINEPHRINE
  24. FLUCONAZOLE [Concomitant]
     Active Substance: FLUCONAZOLE
  25. FLUOCINONIDE [Concomitant]
     Active Substance: FLUOCINONIDE
  26. FUROSEMIDE [Concomitant]
     Active Substance: FUROSEMIDE
  27. A-HYDROCORT [Concomitant]
     Active Substance: HYDROCORTISONE SODIUM SUCCINATE
  28. HYQVIA [Concomitant]
     Active Substance: HUMAN IMMUNOGLOBULIN G\HYALURONIDASE (HUMAN RECOMBINANT)
  29. LEVOTHYROXINE [Concomitant]
     Active Substance: LEVOTHYROXINE
  30. LIDOCAINE\PRILOCAINE [Concomitant]
     Active Substance: LIDOCAINE\PRILOCAINE
  31. LOSARTAN [Concomitant]
     Active Substance: LOSARTAN
  32. LOSARTAN [Concomitant]
     Active Substance: LOSARTAN
  33. LOTEMAX [Concomitant]
     Active Substance: LOTEPREDNOL ETABONATE
  34. METHYLPREDNISOLONE [Concomitant]
     Active Substance: METHYLPREDNISOLONE
  35. METOPROLOL SUCCINATE [Concomitant]
     Active Substance: METOPROLOL SUCCINATE
  36. MINOXIDIL [Concomitant]
     Active Substance: MINOXIDIL
  37. NORTRIPTYLINE [Concomitant]
     Active Substance: NORTRIPTYLINE
  38. NORTRIPTYLINE [Concomitant]
     Active Substance: NORTRIPTYLINE
  39. NORTRIPTYLINE [Concomitant]
     Active Substance: NORTRIPTYLINE
  40. NP THYROID [Concomitant]
     Active Substance: LEVOTHYROXINE\LIOTHYRONINE
  41. NP THYROID [Concomitant]
     Active Substance: LEVOTHYROXINE\LIOTHYRONINE
  42. NP THYROID [Concomitant]
     Active Substance: LEVOTHYROXINE\LIOTHYRONINE
  43. OFLOXACIN [Concomitant]
     Active Substance: OFLOXACIN
  44. ONDANSETRON [Concomitant]
     Active Substance: ONDANSETRON
  45. PANTOPRAZOLE [Concomitant]
     Active Substance: PANTOPRAZOLE
  46. Penicilin v kali [Concomitant]
  47. PIMECROLIMUS [Concomitant]
     Active Substance: PIMECROLIMUS
  48. POTASSIUM CHLORIDE [Concomitant]
     Active Substance: POTASSIUM CHLORIDE
  49. PROMETHAZINE [Concomitant]
     Active Substance: PROMETHAZINE HYDROCHLORIDE
  50. PROMETHAZINE [Concomitant]
     Active Substance: PROMETHAZINE HYDROCHLORIDE
  51. RESTASIS [Concomitant]
     Active Substance: CYCLOSPORINE
  52. RIZATRIPTAN [Concomitant]
     Active Substance: RIZATRIPTAN
  53. TACROLIMUS [Concomitant]
     Active Substance: TACROLIMUS
  54. TRETINOIN [Concomitant]
     Active Substance: TRETINOIN
  55. TRETINOIN [Concomitant]
     Active Substance: TRETINOIN
  56. TRIAMTERENE AND HYDROCHLOROTHIAZIDE [Concomitant]
     Active Substance: HYDROCHLOROTHIAZIDE\TRIAMTERENE
  57. TRIAMTERENE AND HYDROCHLOROTHIAZIDE [Concomitant]
     Active Substance: HYDROCHLOROTHIAZIDE\TRIAMTERENE
  58. VENLAFAXINE [Concomitant]
     Active Substance: VENLAFAXINE HYDROCHLORIDE
  59. VERAPAMIL [Concomitant]
     Active Substance: VERAPAMIL HYDROCHLORIDE
  60. VERAPAMIL [Concomitant]
     Active Substance: VERAPAMIL HYDROCHLORIDE
  61. VITAMIN D [Concomitant]
     Active Substance: VITAMIN D NOS
  62. XELJANZ [Concomitant]
     Active Substance: TOFACITINIB CITRATE
  63. XELJANZ XR [Concomitant]
     Active Substance: TOFACITINIB CITRATE
  64. DAVESOMERAN\ELASOMERAN [Concomitant]
     Active Substance: DAVESOMERAN\ELASOMERAN
  65. FLUCELVAX QUADRIVALENT 2017/2018 (INFLUENZA A VIRUS A/DARWIN/11/2021 ( [Concomitant]
     Active Substance: INFLUENZA A VIRUS A/DARWIN/11/2021 (H3N2) ANTIGEN (MDCK CELL DERIVED, PROPIOLACTONE INACTIVATED)\INF

REACTIONS (9)
  - Drug ineffective [Unknown]
  - Drug ineffective [Unknown]
  - Drug ineffective [Not Recovered/Not Resolved]
  - Discomfort [Unknown]
  - Tinnitus [Not Recovered/Not Resolved]
  - Discomfort [Unknown]
  - Infection [Unknown]
  - Sinusitis [Unknown]
  - Discomfort [Not Recovered/Not Resolved]

NARRATIVE: CASE EVENT DATE: 20241101
